FAERS Safety Report 14150821 (Version 1)
Quarter: 2017Q4

REPORT INFORMATION
  Report Type: Spontaneous
  Country: US (occurrence: US)
  Receive Date: 20171102
  Receipt Date: 20171102
  Transmission Date: 20180321
  Serious: No
  Sender: FDA-Public Use
  Company Number: US-LUPIN PHARMACEUTICALS INC.-2017-05453

PATIENT
  Age: 60 Year
  Sex: Male
  Weight: 75.28 kg

DRUGS (1)
  1. CALCIUM ACETATE CAPSULES 667MG [Suspect]
     Active Substance: CALCIUM ACETATE
     Indication: END STAGE RENAL DISEASE
     Dosage: 667 MG, TID
     Route: 048
     Dates: start: 20170901

REACTIONS (2)
  - Asthma [Not Recovered/Not Resolved]
  - Abdominal pain [Not Recovered/Not Resolved]

NARRATIVE: CASE EVENT DATE: 20170901
